FAERS Safety Report 11073615 (Version 2)
Quarter: 2015Q2

REPORT INFORMATION
  Report Type: Spontaneous
  Country: CH (occurrence: NL)
  Receive Date: 20150428
  Receipt Date: 20150511
  Transmission Date: 20150821
  Serious: Yes (Disabling)
  Sender: FDA-Public Use
  Company Number: CH-LPDUSPRD-20150259

PATIENT
  Age: 52 Year
  Sex: Male
  Weight: 94 kg

DRUGS (5)
  1. ACENOCOUMAROL [Concomitant]
     Active Substance: ACENOCOUMAROL
     Dosage: DOSE NOT PROVIDED
     Route: 065
     Dates: start: 2011
  2. ESOMEPRAZOLE [Concomitant]
     Active Substance: ESOMEPRAZOLE
     Dosage: 20 MG ONCE DAILY
     Route: 065
     Dates: start: 2011
  3. LOSARTAN [Concomitant]
     Active Substance: LOSARTAN
     Dosage: 100 MG ONCE DAILY
     Route: 065
     Dates: start: 2011
  4. FERINJECT [Suspect]
     Active Substance: FERRIC CARBOXYMALTOSE
     Dosage: 50 MG, 4 TOTAL
     Route: 040
     Dates: start: 20140717, end: 20150206
  5. ENALAPRIL [Concomitant]
     Active Substance: ENALAPRIL
     Dosage: 7.5 MG ONCE DAILY
     Route: 065
     Dates: start: 2012

REACTIONS (7)
  - Osteoarthritis [Recovered/Resolved with Sequelae]
  - Tendonitis [Recovered/Resolved with Sequelae]
  - Paraesthesia [Recovered/Resolved with Sequelae]
  - Peripheral swelling [Recovered/Resolved with Sequelae]
  - Arthralgia [Recovered/Resolved with Sequelae]
  - Abasia [Recovered/Resolved with Sequelae]
  - Pain in extremity [Recovered/Resolved with Sequelae]
